FAERS Safety Report 4642471-1 (Version None)
Quarter: 2005Q2

REPORT INFORMATION
  Report Type: 
  Country: None (occurrence: None)
  Receive Date: 20050422
  Receipt Date: 20050420
  Transmission Date: 20051028
  Serious: Yes (Other)
  Sender: FDA-Public Use
  Company Number: DE-ROCHE-402478

PATIENT
  Age: 41 Year
  Sex: Male

DRUGS (1)
  1. ROACCUTAN [Suspect]
     Indication: ACNE
     Dosage: 10 MG PER DAY FOR FIVE OUT OF SEVEN DAYS
     Route: 048
     Dates: start: 19950615, end: 20050415

REACTIONS (2)
  - BLADDER CANCER [None]
  - TRANSITIONAL CELL CARCINOMA [None]
